FAERS Safety Report 5888140-1 (Version None)
Quarter: 2008Q3

REPORT INFORMATION
  Report Type: 
  Country: None (occurrence: None)
  Receive Date: 20080916
  Receipt Date: 20080916
  Transmission Date: 20090109
  Serious: Yes (Hospitalization)
  Sender: FDA-Public Use
  Company Number: None

PATIENT
  Sex: Male
  Weight: 88 kg

DRUGS (2)
  1. STAVELO   100 MG [Suspect]
     Indication: PARKINSON'S DISEASE
     Dosage: 100 MG  4 TIMES DAILY PO  (DURATION: SEVERAL MONTHS)
     Route: 048
  2. ATORVASTATIN CALCIUM [Concomitant]

REACTIONS (1)
  - RHABDOMYOLYSIS [None]
